FAERS Safety Report 7171230-3 (Version None)
Quarter: 2010Q4

REPORT INFORMATION
  Report Type: 
  Country: None (occurrence: None)
  Receive Date: 20101217
  Receipt Date: 20101206
  Transmission Date: 20110411
  Serious: Yes (Hospitalization)
  Sender: FDA-Public Use
  Company Number: FR-GILEAD-2010-0034221

PATIENT
  Sex: Female
  Weight: 60 kg

DRUGS (7)
  1. TRUVADA [Suspect]
     Dates: start: 20060824
  2. KALETRA [Concomitant]
     Dates: start: 20060824
  3. TARDYFERON [Concomitant]
     Indication: HERPES VIRUS INFECTION
     Dates: start: 20091125
  4. VALACYCLOVIR HYDROCHLORIDE [Concomitant]
     Indication: HERPES VIRUS INFECTION
     Dates: start: 20091125
  5. CLAFORAN [Concomitant]
     Indication: PYELONEPHRITIS
  6. CLAMOXYL [Concomitant]
     Indication: PYELONEPHRITIS
  7. ZIDOVUDINE [Concomitant]

REACTIONS (6)
  - ABORTION SPONTANEOUS [None]
  - DRUG EXPOSURE DURING PREGNANCY [None]
  - HAEMOGLOBIN DECREASED [None]
  - HERPES VIRUS INFECTION [None]
  - PREGNANCY [None]
  - PYELONEPHRITIS [None]
